FAERS Safety Report 4975677-2 (Version None)
Quarter: 2006Q2

REPORT INFORMATION
  Report Type: 
  Country: None (occurrence: None)
  Receive Date: 20060411
  Receipt Date: 20060327
  Transmission Date: 20061013
  Serious: Yes (Death, Other)
  Sender: FDA-Public Use
  Company Number: 2006-050 (A)

PATIENT
  Age: 81 Year
  Sex: Male

DRUGS (9)
  1. CITALOPRAM [Suspect]
     Dosage: 20MG B.I.D
  2. LINEZOLID [Suspect]
     Indication: OSTEOMYELITIS
     Dosage: 600MG B.I.D
  3. PREDNISONE [Concomitant]
  4. METHOTREXATE [Concomitant]
  5. DIGOXIN [Concomitant]
  6. TORSEMIDE [Concomitant]
  7. INSULIN [Concomitant]
  8. OXAZEPAM [Concomitant]
  9. TRINITRAS [Concomitant]

REACTIONS (14)
  - BLOOD CREATINE PHOSPHOKINASE INCREASED [None]
  - CARDIAC ARREST [None]
  - ENCEPHALOPATHY [None]
  - HEPATIC FAILURE [None]
  - HYPERTENSION [None]
  - LACTIC ACIDOSIS [None]
  - MYOCARDIAL INFARCTION [None]
  - PYREXIA [None]
  - SEROTONIN SYNDROME [None]
  - TACHYCARDIA [None]
  - THROMBOCYTOPENIA [None]
  - TOXIC INDUCED ENCEPHALOPATHY [None]
  - TREMOR [None]
  - VENTRICULAR DYSFUNCTION [None]
